FAERS Safety Report 4472849-0 (Version None)
Quarter: 2004Q4

REPORT INFORMATION
  Report Type: 
  Country: None (occurrence: None)
  Receive Date: 20041012
  Receipt Date: 20041012
  Transmission Date: 20050328
  Serious: Yes (Other)
  Sender: FDA-Public Use
  Company Number: None

PATIENT
  Age: 48 Year
  Sex: Female
  Weight: 58.9676 kg

DRUGS (4)
  1. NEURONTIN [Suspect]
     Indication: HYPOAESTHESIA
     Dosage: 300MG  TID  ORAL
     Route: 048
     Dates: start: 20040602, end: 20040605
  2. NEURONTIN [Suspect]
     Indication: NERVOUS SYSTEM DISORDER
     Dosage: 300MG  TID  ORAL
     Route: 048
     Dates: start: 20040602, end: 20040605
  3. NEURONTIN [Suspect]
     Indication: PARAESTHESIA
     Dosage: 300MG  TID  ORAL
     Route: 048
     Dates: start: 20040602, end: 20040605
  4. NEURONTIN [Suspect]
     Dosage: 100MG TID ORAL
     Route: 048
     Dates: start: 20040606, end: 20040918

REACTIONS (5)
  - CHEST PAIN [None]
  - DYSPNOEA [None]
  - FATIGUE [None]
  - HEART RATE INCREASED [None]
  - HYPERSOMNIA [None]
